FAERS Safety Report 13621236 (Version 1)
Quarter: 2017Q2

REPORT INFORMATION
  Report Type: Spontaneous
  Country: US (occurrence: US)
  Receive Date: 20170607
  Receipt Date: 20170607
  Transmission Date: 20170830
  Serious: No
  Sender: FDA-Public Use
  Company Number: US-PFIZER INC-2017243928

PATIENT
  Sex: Male
  Weight: 133.79 kg

DRUGS (25)
  1. METHOTREXATE SODIUM. [Suspect]
     Active Substance: METHOTREXATE SODIUM
     Indication: RHEUMATOID ARTHRITIS
     Dosage: UNK
     Route: 058
  2. METOPROLOL TARTRATE. [Concomitant]
     Active Substance: METOPROLOL TARTRATE
     Dosage: 25 MG, 2X/DAY
     Route: 048
  3. OFLOXACIN. [Concomitant]
     Active Substance: OFLOXACIN
     Dosage: 5 GTT, 2X/DAY(FOR 10 DAYS)
     Route: 047
  4. ORPHENADRINE CITRATE. [Concomitant]
     Active Substance: ORPHENADRINE CITRATE
     Dosage: 100 MG, AS NEEDED (1 TABLET Q 12 H PRN)
     Route: 048
  5. SULFAMETHOXAZOLE AND TRIMETHOPRIM [Concomitant]
     Active Substance: SULFAMETHOXAZOLE\TRIMETHOPRIM
     Dosage: 1 DF, UNK(SULFAMETHOXAZOLE 800 MG-TRIMETHOPRLM 160 MG, 1 TAB Q 12H FOR 14 DAYS)
     Route: 048
  6. TAMSULOSIN [Concomitant]
     Active Substance: TAMSULOSIN
     Dosage: 0.4 MG, DAILY (30 MINS AFTER SAME MEAL DAILY)
     Route: 048
  7. BUSPIRONE [Concomitant]
     Active Substance: BUSPIRONE HYDROCHLORIDE
     Dosage: 15 MG, 2X/DAY
     Route: 048
  8. OFLOXACIN. [Concomitant]
     Active Substance: OFLOXACIN
     Dosage: 5 GTT, 2X/DAY (FOR 10 DAYS)
  9. PREDNISONE. [Concomitant]
     Active Substance: PREDNISONE
     Dosage: 10 MG, UNK (3 TAB DAILY FOR 5 DAYS, THEN 2 TAB DAILY FOR 5 DAYS, THEN STAY ON 1 TAB DAILY)
     Route: 048
  10. CEFDINIR. [Concomitant]
     Active Substance: CEFDINIR
     Dosage: 300 MG, UNK(TK 1 C PO Q 12 H)
     Route: 048
  11. CELECOXIB. [Concomitant]
     Active Substance: CELECOXIB
     Dosage: 200 MG, 2X/DAY (TAKE 1 CAPSULE BY MOUTH 2 TIMES DAILY FOR 30 DAYS)
     Route: 048
  12. HYDROCODONE/ACETAMINOPHEN [Concomitant]
     Active Substance: ACETAMINOPHEN\HYDROCODONE
     Indication: PAIN
     Dosage: 1 DF, AS NEEDED (HYDROCODONE 5 MG/ACETAMINOPHEN 325MG EVERY 6 HOURS AS NEEDED)
     Route: 048
  13. OXYCODONE [Concomitant]
     Active Substance: OXYCODONE
     Indication: PAIN
     Dosage: 5 MG, UNK (1 TABLET Q 12 TO 24 H)
     Route: 048
  14. OXYCONTIN [Concomitant]
     Active Substance: OXYCODONE HYDROCHLORIDE
     Dosage: 15 MG, UNK (1 TABLET Q 12 H UTD)
     Route: 048
  15. SERTRALINE [Concomitant]
     Active Substance: SERTRALINE HYDROCHLORIDE
     Dosage: 100 MG, DAILY
     Route: 048
  16. ALPRAZOLAM. [Concomitant]
     Active Substance: ALPRAZOLAM
     Dosage: 0.25 MG, 2X/DAY (TK 1 T PO BID PRA)
     Route: 048
  17. NYSTATIN. [Concomitant]
     Active Substance: NYSTATIN
     Dosage: 5 ML, 4X/DAY (USE UNTIL NO SYMPTOMS FOR 48 HOURS. DO NOT USE LONGER THAN 10 DAYS)
     Route: 048
  18. ONDANSETRON HYDROCHLORIDE. [Concomitant]
     Active Substance: ONDANSETRON HYDROCHLORIDE
     Indication: NAUSEA
     Dosage: 4 MG, AS NEEDED (1 TAB EVERY 6 HOURS AS NEEDED)
     Route: 048
  19. TRIAMCINOLONE ACETONIDE. [Concomitant]
     Active Substance: TRIAMCINOLONE ACETONIDE
     Dosage: UNK, 2X/DAY (APP THIN LAYER EXT AA BID FOR 5 DAYS)
     Route: 061
  20. OMEPRAZOLE. [Concomitant]
     Active Substance: OMEPRAZOLE
     Dosage: 40 MG, DAILY (BEFORE BREAKFAST)
     Route: 048
  21. GABAPENTIN. [Concomitant]
     Active Substance: GABAPENTIN
     Dosage: 300 MG, 3X/DAY (TK 1 C PO TID AS DIRECTED)
     Route: 048
  22. SERTRALINE [Concomitant]
     Active Substance: SERTRALINE HYDROCHLORIDE
     Dosage: 50 MG, DAILY
     Route: 048
  23. ALPRAZOLAM. [Concomitant]
     Active Substance: ALPRAZOLAM
     Dosage: 0.5 MG, 3X/DAY
     Route: 048
  24. ONDANSETRON HYDROCHLORIDE. [Concomitant]
     Active Substance: ONDANSETRON HYDROCHLORIDE
     Indication: VOMITING
  25. TRAMADOL. [Concomitant]
     Active Substance: TRAMADOL
     Indication: PAIN
     Dosage: 50 MG, AS NEEDED (1 TAB Q 6 H PRF PAIN- MUST LAST 30 DAYS)
     Route: 048

REACTIONS (1)
  - Hepatic enzyme increased [Unknown]
